FAERS Safety Report 9617173 (Version 1)
Quarter: 2013Q4

REPORT INFORMATION
  Report Type: Spontaneous
  Country: US (occurrence: US)
  Receive Date: 20131011
  Receipt Date: 20131011
  Transmission Date: 20140711
  Serious: Yes (Other)
  Sender: FDA-Public Use
  Company Number: US-BAYER-2013-121513

PATIENT
  Sex: 0

DRUGS (1)
  1. XOFIGO [Suspect]

REACTIONS (1)
  - Platelet count decreased [None]
